FAERS Safety Report 19242912 (Version 1)
Quarter: 2021Q2

REPORT INFORMATION
  Report Type: Spontaneous
  Country: US (occurrence: US)
  Receive Date: 20210511
  Receipt Date: 20210511
  Transmission Date: 20210717
  Serious: Yes (Hospitalization)
  Sender: FDA-Public Use
  Company Number: None

PATIENT
  Sex: Female

DRUGS (5)
  1. POTASSIUM, LYRICA, CALCIUM GLUCONATE, VICODIN, SERTRALINE, PROBIOTIC [Concomitant]
  2. DIAZEPAM, PANTOPRAZOLE, MIDODRINE, MECLIZINE, BACTRIM, AXERT, ELIQUIS. [Concomitant]
  3. DALFAMPRIDINE. [Suspect]
     Active Substance: DALFAMPRIDINE
     Indication: MULTIPLE SCLEROSIS
     Route: 048
     Dates: start: 20150825
  4. BIOTIN, BYSTOLIC, VESICARE, TIZANIDINE, BACLOFEN, AMBIEN, AMANTADINE [Concomitant]
  5. RITUXAN, PROTONIX, METHYLPEHNIDATE, VITAMIN D3 [Concomitant]

REACTIONS (3)
  - Fall [None]
  - COVID-19 [None]
  - Mobility decreased [None]
